FAERS Safety Report 4474798-0 (Version None)
Quarter: 2004Q4

REPORT INFORMATION
  Report Type: 
  Country: None (occurrence: None)
  Receive Date: 20041012
  Receipt Date: 20040929
  Transmission Date: 20050328
  Serious: Yes (Death)
  Sender: FDA-Public Use
  Company Number: 8003116

PATIENT
  Sex: Male

DRUGS (6)
  1. KEPPRA [Suspect]
     Dosage: TRP
  2. TEGRETOL [Suspect]
     Dosage: TRP
  3. AMOXICILLIN AND CLAVULANATE POTASSIUM [Concomitant]
  4. LOMEXIN [Concomitant]
  5. TAMAXIN [Concomitant]
  6. FOLIC ACID [Concomitant]

REACTIONS (14)
  - ABORTION INDUCED [None]
  - ATRIOVENTRICULAR CANAL [None]
  - CARDIOMYOPATHY NEONATAL [None]
  - CONGENITAL ANOMALY [None]
  - CONGENITAL CARDIAC SEPTAL DEFECT [None]
  - CONGENITAL DIAPHRAGMATIC HERNIA [None]
  - CONGENITAL URETERIC ANOMALY [None]
  - DRUG EXPOSURE DURING PREGNANCY [None]
  - EXTRAMEDULLARY HAEMOPOIESIS [None]
  - FOETAL MALFORMATION [None]
  - HAEMORRHAGE [None]
  - MENINGEAL DISORDER [None]
  - PLACENTAL DISORDER [None]
  - PULMONARY HYPOPLASIA [None]
